FAERS Safety Report 19601714 (Version 1)
Quarter: 2021Q3

REPORT INFORMATION
  Report Type: Other
  Country: DE (occurrence: DE)
  Receive Date: 20210723
  Receipt Date: 20210723
  Transmission Date: 20211014
  Serious: Yes (Other)
  Sender: FDA-Public Use
  Company Number: DE-MACLEODS PHARMACEUTICALS US LTD-MAC2021031946

PATIENT

DRUGS (2)
  1. LEVOFLOXACIN 500 MG [Suspect]
     Active Substance: LEVOFLOXACIN
     Indication: EPIDIDYMITIS
     Dosage: 500 MILLIGRAM, QD
     Route: 048
     Dates: start: 20210626, end: 20210710
  2. VAXZEVRIA [Concomitant]
     Active Substance: AZD-1222
     Indication: COVID-19 IMMUNISATION
     Dosage: UNK, 1 DOSE
     Route: 042
     Dates: start: 20210705

REACTIONS (8)
  - Vertigo [Recovering/Resolving]
  - Confusional state [Recovering/Resolving]
  - Panic attack [Recovering/Resolving]
  - Breast pain [Not Recovered/Not Resolved]
  - Aggression [Not Recovered/Not Resolved]
  - Circulatory collapse [Recovered/Resolved]
  - Arthralgia [Not Recovered/Not Resolved]
  - Euphoric mood [Not Recovered/Not Resolved]

NARRATIVE: CASE EVENT DATE: 20210627
